FAERS Safety Report 8580369-7 (Version None)
Quarter: 2012Q2

REPORT INFORMATION
  Report Type: 
  Country: None (occurrence: None)
  Receive Date: 20120423
  Receipt Date: 20100609
  Transmission Date: 20120825
  Serious: Yes (Hospitalization)
  Sender: FDA-Public Use
  Company Number: PHHY2009US13567

PATIENT
  Age: 30 Year
  Sex: Male

DRUGS (1)
  1. EXJADE [Suspect]
     Indication: SICKLE CELL ANAEMIA
     Dosage: 1375 MG, QD, ORAL
     Route: 048
     Dates: start: 20090227

REACTIONS (2)
  - SICKLE CELL ANAEMIA WITH CRISIS [None]
  - DIARRHOEA [None]
